FAERS Safety Report 6903393-6 (Version None)
Quarter: 2010Q3

REPORT INFORMATION
  Report Type: 
  Country: None (occurrence: None)
  Receive Date: 20100803
  Receipt Date: 20080926
  Transmission Date: 20110219
  Serious: No
  Sender: FDA-Public Use
  Company Number: US-PFIZER INC-2008024956

PATIENT
  Sex: Male
  Weight: 86.18 kg

DRUGS (10)
  1. LYRICA [Suspect]
     Indication: CHEST PAIN
     Route: 048
     Dates: start: 20071001
  2. LYRICA [Suspect]
     Indication: PROCEDURAL PAIN
  3. ATENOLOL [Concomitant]
  4. AMBIEN [Concomitant]
  5. VIAGRA [Concomitant]
  6. NEXIUM [Concomitant]
  7. HYZAAR [Concomitant]
  8. LIPITOR [Concomitant]
  9. MAGNESIUM [Concomitant]
  10. CALCIUM [Concomitant]

REACTIONS (4)
  - BALANCE DISORDER [None]
  - BLOOD CHLORIDE INCREASED [None]
  - BODY HEIGHT DECREASED [None]
  - ORGASM ABNORMAL [None]
